FAERS Safety Report 11648522 (Version 1)
Quarter: 2015Q4

REPORT INFORMATION
  Report Type: Spontaneous
  Country: US (occurrence: US)
  Receive Date: 20151021
  Receipt Date: 20151021
  Transmission Date: 20160304
  Serious: No
  Sender: FDA-Public Use
  Company Number: US-PURDUE-USA-2015-0123203

PATIENT
  Sex: Female

DRUGS (1)
  1. OXYCONTIN [Suspect]
     Active Substance: OXYCODONE HYDROCHLORIDE
     Indication: THROAT CANCER
     Dosage: 20 MG, UNK
     Route: 048
     Dates: start: 20150501

REACTIONS (2)
  - Pain [Unknown]
  - Wrong technique in product usage process [Unknown]
